FAERS Safety Report 5076871-5 (Version None)
Quarter: 2006Q3

REPORT INFORMATION
  Report Type: 
  Country: None (occurrence: None)
  Receive Date: 20060725
  Receipt Date: 20060315
  Transmission Date: 20061208
  Serious: No
  Sender: FDA-Public Use
  Company Number: 200610646BWH

PATIENT
  Age: 62 Year
  Sex: Female
  Weight: 65.7716 kg

DRUGS (4)
  1. NEXAVAR [Suspect]
     Indication: RENAL CANCER METASTATIC
     Dosage: 400 MG, BID, ORAL
     Route: 048
     Dates: start: 20060126
  2. LOTREL [Concomitant]
  3. CRESTOR [Concomitant]
  4. MULTIVITAMIN [Concomitant]

REACTIONS (9)
  - ALOPECIA [None]
  - BLISTER [None]
  - EPISTAXIS [None]
  - ERYTHEMA [None]
  - EYE SWELLING [None]
  - HAIR TEXTURE ABNORMAL [None]
  - PAIN IN EXTREMITY [None]
  - RASH [None]
  - SWELLING [None]
